FAERS Safety Report 25717931 (Version 1)
Quarter: 2025Q3

REPORT INFORMATION
  Report Type: Report from Study
  Country: IN (occurrence: IN)
  Receive Date: 20250822
  Receipt Date: 20250822
  Transmission Date: 20251021
  Serious: Yes (Other)
  Sender: DAIICHI
  Company Number: IN-AstraZeneca-CH-00931241A

PATIENT
  Sex: Female

DRUGS (1)
  1. ENHERTU [Suspect]
     Active Substance: FAM-TRASTUZUMAB DERUXTECAN-NXKI
     Indication: Product used for unknown indication
     Route: 040

REACTIONS (2)
  - Hypophagia [Unknown]
  - Asthenia [Unknown]
